FAERS Safety Report 9241719 (Version 2)
Quarter: 2013Q3

REPORT INFORMATION
  Report Type: Spontaneous
  Country: US (occurrence: US)
  Receive Date: 20130419
  Receipt Date: 20130708
  Transmission Date: 20140515
  Serious: Yes (Congenital Anomaly, Other)
  Sender: FDA-Public Use
  Company Number: US-JNJFOC-20130408242

PATIENT
  Age: 0 Year
  Sex: Male

DRUGS (3)
  1. REMICADE [Suspect]
     Indication: FOETAL EXPOSURE DURING PREGNANCY
     Route: 064
     Dates: start: 20120601, end: 20121108
  2. REMICADE [Suspect]
     Indication: FOETAL EXPOSURE DURING PREGNANCY
     Dosage: PARENTAL DOSING (400-600MG)
     Route: 064
     Dates: start: 20100625, end: 201111
  3. PREDNISONE [Suspect]
     Indication: FOETAL EXPOSURE DURING PREGNANCY
     Dosage: PARENTAL DOSING (5-30MG/D)
     Route: 064
     Dates: start: 20080516

REACTIONS (2)
  - Deafness bilateral [Not Recovered/Not Resolved]
  - Foetal heart rate deceleration abnormality [Recovered/Resolved]
